FAERS Safety Report 22156495 (Version 1)
Quarter: 2023Q1

REPORT INFORMATION
  Report Type: Spontaneous
  Country: US (occurrence: None)
  Receive Date: 20230329
  Receipt Date: 20230329
  Transmission Date: 20230418
  Serious: Yes (Hospitalization)
  Sender: FDA-Public Use
  Company Number: None

PATIENT
  Sex: Female

DRUGS (2)
  1. ICATIBANT ACETATE [Suspect]
     Active Substance: ICATIBANT ACETATE
     Indication: Complement deficiency disease
     Dosage: 30 MG AS NEEDED SUBCUTANEOUS?
     Route: 058
     Dates: start: 20210324
  2. HAEGARDA [Concomitant]

REACTIONS (2)
  - Pharyngeal swelling [None]
  - Gastrointestinal disorder [None]
